FAERS Safety Report 6026110-3 (Version None)
Quarter: 2009Q1

REPORT INFORMATION
  Report Type: 
  Country: None (occurrence: None)
  Receive Date: 20090102
  Receipt Date: 20081220
  Transmission Date: 20090719
  Serious: Yes (Other)
  Sender: FDA-Public Use
  Company Number: IT-BAYER-200833556GPV

PATIENT
  Age: 67 Year
  Sex: Male

DRUGS (7)
  1. SOTALOL [Suspect]
     Indication: ATRIAL FLUTTER
     Dosage: TOTAL DAILY DOSE: 120 MG
     Route: 065
  2. METHYLPREDNISOLONE 16MG TAB [Concomitant]
     Indication: PEMPHIGUS
     Route: 048
  3. ENALAPRIL MALEATE [Concomitant]
     Indication: HYPERTENSION
     Route: 065
  4. POTASSIUM CANRENOATE [Concomitant]
     Indication: HYPERTENSION
     Route: 065
  5. BUTIZIDE [Concomitant]
     Indication: HYPERTENSION
     Route: 065
  6. PHENYTOIN [Concomitant]
     Indication: EPILEPSY
     Route: 065
  7. LAMOTRIGINE [Concomitant]
     Indication: EPILEPSY
     Route: 065

REACTIONS (1)
  - BRUGADA SYNDROME [None]
